APPROVED DRUG PRODUCT: STERILE WATER FOR INJECTION IN PLASTIC CONTAINER
Active Ingredient: STERILE WATER FOR INJECTION
Strength: 100%
Dosage Form/Route: LIQUID;N/A
Application: N019077 | Product #001
Applicant: B BRAUN MEDICAL INC
Approved: Mar 2, 1984 | RLD: No | RS: No | Type: DISCN